FAERS Safety Report 8282757-5 (Version None)
Quarter: 2012Q2

REPORT INFORMATION
  Report Type: 
  Country: None (occurrence: None)
  Receive Date: 20120413
  Receipt Date: 20120404
  Transmission Date: 20120825
  Serious: Yes (Hospitalization, Other)
  Sender: FDA-Public Use
  Company Number: FR-ASTRAZENECA-2012SE22672

PATIENT
  Age: 718 Month
  Sex: Female

DRUGS (11)
  1. ATORVASTATIN [Concomitant]
     Route: 048
  2. TRIMEPRAZINE TARTRATE [Concomitant]
     Indication: INSOMNIA
     Route: 048
  3. DIGOXIN [Concomitant]
     Route: 048
  4. LASIX [Concomitant]
     Route: 048
  5. ATARAX [Concomitant]
     Route: 048
  6. CORDARONE [Concomitant]
     Route: 048
  7. QUETIAPINE FUMARATE [Suspect]
     Indication: BIPOLAR DISORDER
     Route: 048
     Dates: start: 20120201
  8. ZOLPIDEM TARTRATE [Concomitant]
     Indication: INSOMNIA
     Route: 048
  9. PREVISCAN [Concomitant]
     Indication: ARRHYTHMIA
     Route: 048
  10. LEVOTHYROXINE SODIUM [Concomitant]
     Route: 048
  11. POTASSIUM CHLORIDE [Concomitant]
     Route: 048

REACTIONS (19)
  - BRADYPHRENIA [None]
  - SEDATION [None]
  - GAIT DISTURBANCE [None]
  - NAUSEA [None]
  - COGNITIVE DISORDER [None]
  - MEMORY IMPAIRMENT [None]
  - THIRST [None]
  - ECCHYMOSIS [None]
  - CELL DEATH [None]
  - ORTHOSTATIC HYPOTENSION [None]
  - BUNDLE BRANCH BLOCK RIGHT [None]
  - FALL [None]
  - BALANCE DISORDER [None]
  - TREMOR [None]
  - DIZZINESS [None]
  - ELECTROCARDIOGRAM QT PROLONGED [None]
  - RENAL FAILURE ACUTE [None]
  - APHASIA [None]
  - VOMITING [None]
